FAERS Safety Report 8149074-5 (Version None)
Quarter: 2012Q1

REPORT INFORMATION
  Report Type: 
  Country: None (occurrence: None)
  Receive Date: 20120218
  Receipt Date: 20110829
  Transmission Date: 20120608
  Serious: Yes (Hospitalization)
  Sender: FDA-Public Use
  Company Number: US-ALLERGAN-1111549US

PATIENT
  Age: 33 Year
  Sex: Female

DRUGS (1)
  1. BOTOX COSMETIC [Suspect]
     Indication: TEMPOROMANDIBULAR JOINT SYNDROME
     Dosage: 40 UNITS, SINGLE
     Route: 030
     Dates: start: 20110819, end: 20110819

REACTIONS (2)
  - DYSPNOEA [None]
  - SINUS HEADACHE [None]
